FAERS Safety Report 8008197-1 (Version None)
Quarter: 2011Q4

REPORT INFORMATION
  Report Type: 
  Country: None (occurrence: None)
  Receive Date: 20111222
  Receipt Date: 20111222
  Transmission Date: 20120403
  Serious: Yes (Hospitalization)
  Sender: FDA-Public Use
  Company Number: None

PATIENT
  Age: 87 Year
  Sex: Female
  Weight: 45.3597 kg

DRUGS (1)
  1. PRADAXA [Suspect]
     Indication: INTERNATIONAL NORMALISED RATIO
     Dosage: 150 MG 2 A DAY
     Dates: start: 20110707, end: 20110723

REACTIONS (14)
  - PERIPHERAL COLDNESS [None]
  - THROMBOSIS [None]
  - GENERAL PHYSICAL HEALTH DETERIORATION [None]
  - CLOSTRIDIAL INFECTION [None]
  - NAUSEA [None]
  - SYNCOPE [None]
  - MALAISE [None]
  - BLOOD DISORDER [None]
  - PRODUCT SUBSTITUTION ISSUE [None]
  - DEMENTIA [None]
  - RASH MACULAR [None]
  - FEAR [None]
  - ASTHENIA [None]
  - LACRIMATION INCREASED [None]
